FAERS Safety Report 24829155 (Version 2)
Quarter: 2025Q4

REPORT INFORMATION
  Report Type: Spontaneous
  Country: JP (occurrence: JP)
  Receive Date: 20250110
  Receipt Date: 20251208
  Transmission Date: 20260117
  Serious: Yes (Hospitalization, Other)
  Sender: GLAXOSMITHKLINE
  Company Number: JP-GSK-JP2025JPN001190

PATIENT
  Age: 65 Year
  Sex: Male

DRUGS (2)
  1. LAMICTAL [Suspect]
     Active Substance: LAMOTRIGINE
     Indication: Bipolar disorder
     Dosage: 25 MG, QD
  2. UPADACITINIB [Concomitant]
     Active Substance: UPADACITINIB
     Indication: Dermatitis exfoliative generalised
     Dosage: 15 MG, QD

REACTIONS (19)
  - Drug reaction with eosinophilia and systemic symptoms [Unknown]
  - Erythema multiforme [Unknown]
  - Hepatic failure [Unknown]
  - Gastric ulcer [Unknown]
  - Dermatitis exfoliative generalised [Unknown]
  - Decreased appetite [Unknown]
  - Dementia [Unknown]
  - Depressed level of consciousness [Unknown]
  - Renal impairment [Unknown]
  - Pyelonephritis [Unknown]
  - Pyrexia [Unknown]
  - Rash [Unknown]
  - Swelling face [Unknown]
  - Erythema [Unknown]
  - Liver disorder [Recovering/Resolving]
  - Cytomegalovirus infection [Unknown]
  - Condition aggravated [Unknown]
  - Mobility decreased [Unknown]
  - Immobilisation syndrome [Unknown]
